FAERS Safety Report 23248756 (Version 1)
Quarter: 2023Q4

REPORT INFORMATION
  Report Type: Spontaneous
  Country: JP (occurrence: JP)
  Receive Date: 20231201
  Receipt Date: 20231201
  Transmission Date: 20240110
  Serious: No
  Sender: FDA-Public Use
  Company Number: None

PATIENT
  Age: 61 Year
  Sex: Female

DRUGS (8)
  1. TACROLIMUS [Interacting]
     Active Substance: TACROLIMUS
     Indication: Immunosuppressant drug therapy
     Dosage: 1 MG/DAY, BID (EVERY 12 HOUR)
     Route: 048
  2. TACROLIMUS [Interacting]
     Active Substance: TACROLIMUS
     Dosage: UNK (RECHALLENGE)
     Route: 065
  3. NIRMATRELVIR [Interacting]
     Active Substance: NIRMATRELVIR
     Indication: COVID-19
     Dosage: 1 DOSAGE FORM, BID ( EVERY 12 HOUR)
     Route: 048
  4. RITONAVIR [Interacting]
     Active Substance: RITONAVIR
     Indication: COVID-19
     Dosage: 1 DOSAGE FORM, BID (EVERY 12 HOUR)
     Route: 048
  5. ACETAMINOPHEN [Concomitant]
     Active Substance: ACETAMINOPHEN
     Indication: Product used for unknown indication
     Dosage: 500 MILLIGRAM, TID (EVERY 8 HOUR)
     Route: 065
  6. CARBOCYSTEINE [Concomitant]
     Active Substance: CARBOCYSTEINE
     Indication: Product used for unknown indication
     Dosage: 500 MILLIGRAM, TID (EVERY 8 HOUR)
     Route: 065
  7. Ketoprofen tape [Concomitant]
     Indication: Product used for unknown indication
     Dosage: UNK
     Route: 065
  8. SENNOSIDES [Concomitant]
     Active Substance: SENNOSIDES
     Indication: Product used for unknown indication
     Dosage: 12 MILLIGRAM, BID (EVERY 12 HOUR)
     Route: 065

REACTIONS (5)
  - Drug interaction [Unknown]
  - Immunosuppressant drug level increased [Recovered/Resolved]
  - COVID-19 [Unknown]
  - Nausea [Recovered/Resolved]
  - Vomiting [Recovered/Resolved]
